FAERS Safety Report 8422102-5 (Version None)
Quarter: 2012Q2

REPORT INFORMATION
  Report Type: 
  Country: None (occurrence: None)
  Receive Date: 20120323
  Receipt Date: 20111214
  Transmission Date: 20120825
  Serious: Yes (Hospitalization, Other)
  Sender: FDA-Public Use
  Company Number: 163-21880-11122003

PATIENT
  Age: 24 Year
  Sex: Male
  Weight: 85.4 kg

DRUGS (8)
  1. DEXAMETHASONE [Concomitant]
  2. MESNA [Concomitant]
  3. VINCRISTINE [Concomitant]
  4. DOXORUBICIN HCL [Concomitant]
  5. CYTARABINE [Concomitant]
  6. REVLIMID [Suspect]
     Indication: MULTIPLE MYELOMA
     Dosage: 25 MG, DAILY X 21 OF 28 DAYS, PO ; 15 MG, 1 IN 1 D, PO
     Route: 048
     Dates: start: 20111201
  7. REVLIMID [Suspect]
     Indication: MULTIPLE MYELOMA
     Dosage: 25 MG, DAILY X 21 OF 28 DAYS, PO ; 15 MG, 1 IN 1 D, PO
     Route: 048
     Dates: start: 20111101, end: 20111214
  8. CYCLOPHOSPHAMIDE [Concomitant]

REACTIONS (1)
  - PANCYTOPENIA [None]
